FAERS Safety Report 9842773 (Version 1)
Quarter: 2013Q4

REPORT INFORMATION
  Report Type: Spontaneous
  Country: US (occurrence: None)
  Receive Date: 20131219
  Receipt Date: 20131219
  Transmission Date: 20140711
  Serious: Yes (Hospitalization)
  Sender: FDA-Public Use
  Company Number: 163-20785-13094296

PATIENT
  Age: 76 Year
  Sex: Male
  Weight: 86 kg

DRUGS (9)
  1. THALIDOMIDE [Suspect]
     Indication: PLASMA CELL MYELOMA
     Dosage: 100 MG, 1 IN 1 D, PO
     Route: 048
     Dates: start: 201105
  2. ASPIRIN (ACETYLSALICYLIC ACID) [Concomitant]
  3. BUDESONIDE/FORMOTEROL (BUDESONIDE) [Concomitant]
  4. ROSUVASTATIN (ROSUVASTATIN) [Concomitant]
  5. DULOXETINE (DULOXETINE) [Concomitant]
  6. HYDROCODONE/APAP (VICODIN) [Concomitant]
  7. MODAFINIL (MODAFINIL) [Concomitant]
  8. MELPHALAN (MELPHALAN) [Concomitant]
  9. DEXAMETHASONIE (DEXAMETHASONE) [Concomitant]

REACTIONS (1)
  - Renal failure acute [None]
